FAERS Safety Report 24820070 (Version 3)
Quarter: 2025Q2

REPORT INFORMATION
  Report Type: Report from Study
  Country: US (occurrence: US)
  Receive Date: 20250108
  Receipt Date: 20250410
  Transmission Date: 20250716
  Serious: Yes (Hospitalization)
  Sender: ABBVIE
  Company Number: US-ABBVIE-6074472

PATIENT
  Age: 26 Year
  Sex: Female

DRUGS (1)
  1. HUMIRA [Suspect]
     Active Substance: ADALIMUMAB
     Indication: Colitis ulcerative
     Route: 058
     Dates: start: 20200508

REACTIONS (11)
  - Malaise [Unknown]
  - Rhinorrhoea [Recovered/Resolved]
  - Aphasia [Unknown]
  - Nephrolithiasis [Unknown]
  - SARS-CoV-2 test positive [Unknown]
  - Pain [Unknown]
  - Blood urine present [Unknown]
  - Cough [Recovered/Resolved]
  - Back pain [Unknown]
  - Red blood cells urine positive [Recovering/Resolving]
  - Urinary retention [Recovering/Resolving]

NARRATIVE: CASE EVENT DATE: 20250101
